FAERS Safety Report 8998110 (Version 1)
Quarter: 2013Q1

REPORT INFORMATION
  Report Type: Spontaneous
  Country: US (occurrence: US)
  Receive Date: 20130104
  Receipt Date: 20130104
  Transmission Date: 20140127
  Serious: Yes (Hospitalization)
  Sender: FDA-Public Use
  Company Number: US-009507513-1301USA000943

PATIENT
  Age: 38 Year
  Sex: Female

DRUGS (4)
  1. MONTELUKAST SODIUM [Suspect]
     Dosage: UNK, UNK, QD, ORAL
     Route: 048
  2. MEDROL [Suspect]
     Dosage: UNK, UNK QD, ORAL
     Route: 048
  3. PARIET [Concomitant]
  4. ZITHROMAX [Concomitant]

REACTIONS (1)
  - Angioedema [Unknown]
